FAERS Safety Report 5362853-2 (Version None)
Quarter: 2007Q2

REPORT INFORMATION
  Report Type: 
  Country: None (occurrence: None)
  Receive Date: 20070619
  Receipt Date: 20070615
  Transmission Date: 20071010
  Serious: Yes (Hospitalization)
  Sender: FDA-Public Use
  Company Number: KR-MERCK-0706KOR00015

PATIENT
  Age: 56 Year
  Sex: Female
  Weight: 59 kg

DRUGS (1)
  1. VYTORIN [Suspect]
     Indication: HYPERCHOLESTEROLAEMIA
     Route: 048
     Dates: start: 20070410, end: 20070612

REACTIONS (1)
  - HEPATITIS TOXIC [None]
